FAERS Safety Report 23897455 (Version 1)
Quarter: 2024Q2

REPORT INFORMATION
  Report Type: Report from Study
  Country: US (occurrence: US)
  Receive Date: 20240524
  Receipt Date: 20240524
  Transmission Date: 20240716
  Serious: Yes (Hospitalization, Other)
  Sender: FDA-Public Use
  Company Number: US-ABBVIE-5770779

PATIENT
  Age: 63 Year
  Sex: Male

DRUGS (1)
  1. VENCLEXTA [Suspect]
     Active Substance: VENETOCLAX
     Indication: Acute myeloid leukaemia
     Dosage: BY MOUTH ONCE DAILY ON DAYS 1-5 OF EACH CYCLE, STRENGTH: 100 MG
     Route: 048

REACTIONS (4)
  - Blood glucose decreased [Unknown]
  - Wound [Recovered/Resolved]
  - Transfusion [Unknown]
  - Dizziness [Unknown]

NARRATIVE: CASE EVENT DATE: 20240501
